FAERS Safety Report 15567992 (Version 2)
Quarter: 2018Q4

REPORT INFORMATION
  Report Type: Report from Study
  Country: PA (occurrence: PA)
  Receive Date: 20181030
  Receipt Date: 20181128
  Transmission Date: 20190205
  Serious: Yes (Hospitalization, Other)
  Sender: FDA-Public Use
  Company Number: PHHY2018PA003080

PATIENT
  Age: 14 Year
  Sex: Female
  Weight: 71.2 kg

DRUGS (8)
  1. MONTELUKAST [Suspect]
     Active Substance: MONTELUKAST SODIUM
     Indication: PRODUCT USED FOR UNKNOWN INDICATION
     Dosage: 10 MG, QD (AT NIGHT)
     Route: 065
  2. BETAMETHASONE. [Concomitant]
     Active Substance: BETAMETHASONE
     Indication: PRODUCT USED FOR UNKNOWN INDICATION
     Dosage: 1 OT, QD
     Route: 055
  3. SALBUTAMOL [Concomitant]
     Active Substance: ALBUTEROL
     Dosage: 2 DF, Q12H (PUFFS)
     Route: 055
  4. EXJADE [Suspect]
     Active Substance: DEFERASIROX
     Dosage: 2 DF, QD
     Route: 065
  5. EXJADE [Suspect]
     Active Substance: DEFERASIROX
     Dosage: 250 MG, UNK
     Route: 065
  6. EXJADE [Suspect]
     Active Substance: DEFERASIROX
     Indication: SICKLE CELL ANAEMIA
     Dosage: 3 DF (OF 500 MG), QD
     Route: 065
  7. EXJADE [Suspect]
     Active Substance: DEFERASIROX
     Dosage: 500 MG, TID
     Route: 065
  8. SALBUTAMOL [Concomitant]
     Active Substance: ALBUTEROL
     Indication: PRODUCT USED FOR UNKNOWN INDICATION
     Dosage: 1 OT, Q8H
     Route: 055

REACTIONS (14)
  - Allergic transfusion reaction [Recovering/Resolving]
  - Disease recurrence [Unknown]
  - Blood bilirubin increased [Unknown]
  - Abdominal pain [Recovering/Resolving]
  - Pruritus [Recovering/Resolving]
  - Bronchitis [Unknown]
  - Pain [Unknown]
  - Vomiting [Unknown]
  - Dyspnoea [Recovering/Resolving]
  - Pyrexia [Recovering/Resolving]
  - Headache [Recovering/Resolving]
  - Rash generalised [Recovering/Resolving]
  - Blood iron increased [Unknown]
  - Malaise [Unknown]

NARRATIVE: CASE EVENT DATE: 201802
